FAERS Safety Report 15744856 (Version 1)
Quarter: 2018Q4

REPORT INFORMATION
  Report Type: Spontaneous
  Country: US (occurrence: US)
  Receive Date: 20181205
  Receipt Date: 20181205
  Transmission Date: 20190205
  Serious: Yes (Other)
  Sender: FDA-Public Use
  Company Number: None

PATIENT
  Sex: Male
  Weight: 81 kg

DRUGS (3)
  1. MAGNOVIST [Suspect]
     Active Substance: GADOLINIUM
     Indication: NUCLEAR MAGNETIC RESONANCE IMAGING
     Route: 042
  2. GADAVIST [Suspect]
     Active Substance: GADOBUTROL
  3. OMNISCAN [Suspect]
     Active Substance: GADODIAMIDE

REACTIONS (15)
  - Malaise [None]
  - Palpitations [None]
  - Eye pain [None]
  - Memory impairment [None]
  - Dry mouth [None]
  - Pain [None]
  - Bone pain [None]
  - Asthenia [None]
  - Myalgia [None]
  - Dyspnoea [None]
  - Fatigue [None]
  - Muscle twitching [None]
  - Irritable bowel syndrome [None]
  - Diplopia [None]
  - Paraesthesia [None]
